FAERS Safety Report 6083168-3 (Version None)
Quarter: 2009Q1

REPORT INFORMATION
  Report Type: 
  Country: None (occurrence: None)
  Receive Date: 20090219
  Receipt Date: 20090212
  Transmission Date: 20090719
  Serious: Yes (Other)
  Sender: FDA-Public Use
  Company Number: PHHY2009NO05120

PATIENT
  Sex: Female

DRUGS (5)
  1. TEGRETOL [Suspect]
     Indication: EPILEPSY
     Dosage: 500 MG X 2
     Route: 048
     Dates: start: 19980101
  2. VITAE PRO [Interacting]
     Dosage: 1 DF, UNK
     Dates: start: 20081201, end: 20090105
  3. IMIGRAN [Concomitant]
     Indication: HEADACHE
  4. PARACETAMOL [Concomitant]
     Indication: HEADACHE
  5. TRAMADOL HCL [Concomitant]
     Indication: HEADACHE

REACTIONS (3)
  - DRUG INTERACTION [None]
  - DRUG LEVEL DECREASED [None]
  - PETIT MAL EPILEPSY [None]
